FAERS Safety Report 5369345-5 (Version None)
Quarter: 2007Q2

REPORT INFORMATION
  Report Type: 
  Country: None (occurrence: None)
  Receive Date: 20070625
  Receipt Date: 20070314
  Transmission Date: 20071010
  Serious: Yes (Disabling)
  Sender: FDA-Public Use
  Company Number: US-ASTRAZENECA-2007UW04960

PATIENT
  Age: 61 Year
  Sex: Male

DRUGS (4)
  1. CRESTOR [Suspect]
     Route: 048
  2. CRESTOR [Suspect]
     Route: 048
  3. PLAVIX [Concomitant]
  4. ASPIRIN [Concomitant]

REACTIONS (2)
  - ABDOMINAL PAIN [None]
  - MYOSITIS [None]
